FAERS Safety Report 7528829-1 (Version None)
Quarter: 2011Q2

REPORT INFORMATION
  Report Type: 
  Country: None (occurrence: None)
  Receive Date: 20110607
  Receipt Date: 20110117
  Transmission Date: 20111010
  Serious: No
  Sender: FDA-Public Use
  Company Number: US-ASTRAZENECA-2011SE04193

PATIENT
  Age: 75 Year
  Sex: Female

DRUGS (4)
  1. CHOLESTEROL- AND TRIGLYCERIDE REDUCERS [Concomitant]
     Dosage: UNKNOWN
  2. PRILOSEC OTC [Suspect]
     Route: 048
     Dates: start: 20110116, end: 20110116
  3. DRUG USED IN DIABETES [Concomitant]
     Dosage: UNKNOWN
  4. BLOOD PRESSURE MEDICATION [Concomitant]
     Dosage: UNKNOWN

REACTIONS (1)
  - DIARRHOEA [None]
